FAERS Safety Report 18177524 (Version 1)
Quarter: 2020Q3

REPORT INFORMATION
  Report Type: Spontaneous
  Country: CA (occurrence: CA)
  Receive Date: 20200820
  Receipt Date: 20200820
  Transmission Date: 20201103
  Serious: Yes (Death)
  Sender: FDA-Public Use
  Company Number: CA-ASTRAZENECA-2020SF04977

PATIENT
  Age: 73 Year
  Sex: Female

DRUGS (7)
  1. DIAZEPAM. [Concomitant]
     Active Substance: DIAZEPAM
  2. HYDROMORPHONE [Concomitant]
     Active Substance: HYDROMORPHONE
  3. TEMAZEPAM. [Concomitant]
     Active Substance: TEMAZEPAM
  4. OXAZEPAM. [Concomitant]
     Active Substance: OXAZEPAM
  5. AMIODARONE [Suspect]
     Active Substance: AMIODARONE
  6. BISOPROLOL [Concomitant]
     Active Substance: BISOPROLOL
  7. QUETIAPINE. [Suspect]
     Active Substance: QUETIAPINE
     Route: 048

REACTIONS (3)
  - Cardioactive drug level above therapeutic [Fatal]
  - Cardiotoxicity [Fatal]
  - Potentiating drug interaction [Fatal]
